FAERS Safety Report 5920395-7 (Version None)
Quarter: 2008Q4

REPORT INFORMATION
  Report Type: 
  Country: None (occurrence: None)
  Receive Date: 20081016
  Receipt Date: 20080912
  Transmission Date: 20090506
  Serious: Yes (Hospitalization)
  Sender: FDA-Public Use
  Company Number: US-AMGEN-STX307451

PATIENT
  Sex: Female

DRUGS (18)
  1. KINERET [Suspect]
     Indication: RHEUMATOID ARTHRITIS
     Route: 058
     Dates: start: 20020909
  2. PREDNISONE [Suspect]
     Indication: RHEUMATOID ARTHRITIS
     Route: 048
     Dates: start: 19960101
  3. MOBIC [Suspect]
     Indication: RHEUMATOID ARTHRITIS
     Route: 048
     Dates: start: 20050113
  4. MORPHINE [Concomitant]
  5. FOSAMAX [Concomitant]
     Route: 048
  6. NORVASC [Concomitant]
     Route: 048
  7. TEGRETOL [Concomitant]
     Route: 048
  8. LASIX [Concomitant]
     Route: 048
  9. KEPPRA [Concomitant]
     Route: 048
  10. ATIVAN [Concomitant]
     Route: 048
  11. LOPRESSOR [Concomitant]
     Route: 048
  12. RELAFEN [Concomitant]
     Route: 048
  13. PROTONIX [Concomitant]
     Route: 048
  14. POTASSIUM CHLORIDE [Concomitant]
     Route: 048
  15. QUININE [Concomitant]
     Route: 048
  16. DESYREL [Concomitant]
     Route: 048
  17. AMBIEN [Concomitant]
     Route: 048
     Dates: start: 20040101
  18. OXYCODONE HCL [Concomitant]

REACTIONS (1)
  - INTERSTITIAL LUNG DISEASE [None]
